FAERS Safety Report 5376080-6 (Version None)
Quarter: 2007Q3

REPORT INFORMATION
  Report Type: 
  Country: None (occurrence: None)
  Receive Date: 20070702
  Receipt Date: 20070618
  Transmission Date: 20080115
  Serious: Yes (Death, Hospitalization)
  Sender: FDA-Public Use
  Company Number: IT-AMGEN-UK229968

PATIENT
  Sex: Female

DRUGS (7)
  1. NEULASTA [Suspect]
     Indication: PRE-EXISTING DISEASE
     Route: 058
     Dates: start: 20070405, end: 20070604
  2. PREDNISONE [Concomitant]
     Route: 048
     Dates: start: 20070601, end: 20070612
  3. RABEPRAZOLE SODIUM [Concomitant]
     Route: 048
     Dates: start: 20070227
  4. ATENOLOL [Concomitant]
     Route: 048
     Dates: end: 20070608
  5. CANDESARTAN [Concomitant]
     Route: 048
     Dates: start: 20070401, end: 20070608
  6. ASCORBIC ACID [Concomitant]
  7. ARSENIC TRIOXIDE [Concomitant]

REACTIONS (10)
  - ATRIAL FIBRILLATION [None]
  - COMA [None]
  - DYSPNOEA [None]
  - HEPATOSPLENOMEGALY [None]
  - LUNG INFILTRATION [None]
  - LYMPHADENOPATHY [None]
  - PLEURAL EFFUSION [None]
  - PYREXIA [None]
  - RESPIRATORY FAILURE [None]
  - WHITE BLOOD CELL COUNT INCREASED [None]
